FAERS Safety Report 7536416-4 (Version None)
Quarter: 2011Q2

REPORT INFORMATION
  Report Type: 
  Country: None (occurrence: None)
  Receive Date: 20110524
  Receipt Date: 20110304
  Transmission Date: 20111010
  Serious: Yes (Hospitalization)
  Sender: FDA-Public Use
  Company Number: 028883

PATIENT
  Sex: Female
  Weight: 79.8331 kg

DRUGS (5)
  1. LEXAPRO [Concomitant]
  2. DROSPIRENONE AND ETHINYL ESTRADIOL [Concomitant]
  3. PREDNISONE [Concomitant]
  4. CIMZIA [Suspect]
     Indication: CROHN'S DISEASE
     Dosage: (400 MG 1X/MONTH SUBCUTANEOUS)
     Route: 058
     Dates: start: 20101210, end: 20110302
  5. LAMICTAL [Concomitant]

REACTIONS (1)
  - CROHN'S DISEASE [None]
